FAERS Safety Report 9791758 (Version 1)
Quarter: 2014Q1

REPORT INFORMATION
  Report Type: Spontaneous
  Country: HR (occurrence: HR)
  Receive Date: 20140102
  Receipt Date: 20140102
  Transmission Date: 20141002
  Serious: Yes (Other)
  Sender: FDA-Public Use
  Company Number: HR-MERCK-1312HRV012491

PATIENT
  Age: 3 Year
  Sex: Female

DRUGS (2)
  1. AERIUS [Suspect]
     Indication: ALLERGY TO ARTHROPOD BITE
     Dates: start: 201310, end: 201310
  2. KLAVOCIN [Suspect]
     Indication: STREPTOCOCCAL INFECTION
     Dosage: UNK
     Route: 048
     Dates: start: 201310, end: 201310

REACTIONS (2)
  - Hepatitis toxic [Recovered/Resolved]
  - Hepatic enzyme increased [Recovered/Resolved]
